FAERS Safety Report 9723436 (Version 2)
Quarter: 2013Q4

REPORT INFORMATION
  Report Type: Spontaneous
  Country: VN (occurrence: VN)
  Receive Date: 20131202
  Receipt Date: 20131202
  Transmission Date: 20140711
  Serious: Yes (Death)
  Sender: FDA-Public Use
  Company Number: VN-ABBVIE-13P-179-1110889-00

PATIENT
  Age: 10 Year
  Sex: Female
  Weight: 27 kg

DRUGS (1)
  1. SEVORANE [Suspect]
     Indication: INDUCTION AND MAINTENANCE OF ANAESTHESIA
     Dosage: 3% X 10 MIN
     Route: 055
     Dates: start: 20130622, end: 20130622

REACTIONS (2)
  - Cardiac arrest [Fatal]
  - Cardiac failure acute [Fatal]
